FAERS Safety Report 4831577-X (Version None)
Quarter: 2005Q4

REPORT INFORMATION
  Report Type: 
  Country: None (occurrence: None)
  Receive Date: 20051116
  Receipt Date: 20051108
  Transmission Date: 20060501
  Serious: Yes (Other)
  Sender: FDA-Public Use
  Company Number: 2005153274

PATIENT
  Sex: Male

DRUGS (6)
  1. NORVASC [Suspect]
     Indication: ILL-DEFINED DISORDER
     Dosage: ORAL
     Route: 048
     Dates: start: 20000901
  2. VERAPAMIL HCL [Suspect]
     Indication: ILL-DEFINED DISORDER
  3. DISOPYRAMIDE PHOSPHATE [Suspect]
     Indication: ILL-DEFINED DISORDER
  4. LOSARTAN POTASSIUM [Concomitant]
  5. CARBOCISTEINE (CARBOCISTEINE) [Concomitant]
  6. CLENBUTEROL HYDROCHLORIDE (CLENBUTEROL HYDROCHLORIDE) [Concomitant]

REACTIONS (1)
  - ATRIOVENTRICULAR BLOCK [None]
